FAERS Safety Report 25654830 (Version 1)
Quarter: 2025Q3

REPORT INFORMATION
  Report Type: Spontaneous
  Country: GB (occurrence: GB)
  Receive Date: 20250807
  Receipt Date: 20250807
  Transmission Date: 20251020
  Serious: Yes (Hospitalization)
  Sender: RANBAXY
  Company Number: GB-SUN PHARMACEUTICAL INDUSTRIES INC-2025RR-520653

PATIENT
  Age: 86 Year
  Sex: Male

DRUGS (16)
  1. CIPROFLOXACIN [Suspect]
     Active Substance: CIPROFLOXACIN
     Indication: Product used for unknown indication
     Dosage: 750MG TWICE DAILY FOR 5 DAYS - COURSE COMPLETED BY THE TIME PATIENT WAS HOSPITALISED
     Route: 065
  2. LANSOPRAZOLE [Suspect]
     Active Substance: LANSOPRAZOLE
     Indication: Product used for unknown indication
     Dosage: 30 MG GASTRO-RESISTANT CAPSULES ONE TO BE TAKEN EACH MORNING - Y
     Route: 065
  3. OXYCODONE [Concomitant]
     Active Substance: OXYCODONE
     Indication: Product used for unknown indication
     Dosage: 5 MG / 5 ML ORAL SOLUTION SUGAR FREE 3 ML UP TO FOUR TIMES DAILY WHEN REQUIRED FOR BREAKTHROUGH PAIN
     Route: 065
  4. OXYCODONE [Concomitant]
     Active Substance: OXYCODONE
     Dosage: 10 MG MODIFIED-RELEASE TABLETS ONE TO BE TAKEN TWICE A DAY - ONE AT NIGHT, PTS FAM FEELS NOT REQUIRE
     Route: 065
  5. CHOLECALCIFEROL [Concomitant]
     Active Substance: CHOLECALCIFEROL
     Indication: Product used for unknown indication
     Dosage: 20,000 UNIT CAPSULES ONE CAPSULE A MONTH - NOT HAD THIS MONTH
     Route: 065
  6. SENNA [Concomitant]
     Active Substance: SENNOSIDES
     Indication: Product used for unknown indication
     Dosage: 7.5 MG TABLETS TWO TO BE TAKEN AT NIGHT - Y
     Route: 065
  7. CALCIUM CARBONATE\SODIUM ALGINATE\SODIUM BICARBONATE [Concomitant]
     Active Substance: CALCIUM CARBONATE\SODIUM ALGINATE\SODIUM BICARBONATE
     Indication: Product used for unknown indication
     Route: 065
  8. BISOPROLOL [Concomitant]
     Active Substance: BISOPROLOL
     Indication: Product used for unknown indication
     Dosage: 2.5 MG TABLETS ONE TO BE TAKEN DAILY - EVENING
     Route: 065
  9. BISOPROLOL [Concomitant]
     Active Substance: BISOPROLOL
     Dosage: 5 MG TABLETS ONE TO BE TAKEN EACH DAY - Y Y
     Route: 065
  10. DIGOXIN [Concomitant]
     Active Substance: DIGOXIN
     Indication: Product used for unknown indication
     Dosage: 125 MICROGRAM TABLETS ONE TO BE TAKEN EACH DAY - Y OM
     Route: 065
  11. PREGABALIN [Concomitant]
     Active Substance: PREGABALIN
     Indication: Product used for unknown indication
     Dosage: 150 MG CAPSULES ONE TO BE TAKEN TWICE A DAY - Y
     Route: 065
  12. PREGABALIN [Concomitant]
     Active Substance: PREGABALIN
     Dosage: 25 MG CAPSULES ONE TO BE TAKEN TWICE A DAY
     Route: 065
  13. ACETAMINOPHEN [Concomitant]
     Active Substance: ACETAMINOPHEN
     Indication: Product used for unknown indication
     Route: 065
  14. APIXABAN [Concomitant]
     Active Substance: APIXABAN
     Indication: Product used for unknown indication
     Dosage: 2.5 MG TABLETS ONE TO BE TAKEN TWICE A DAY AS PER CARDIOLOGY
     Route: 065
  15. POLYETHYLENE GLYCOL 3350\POTASSIUM CHLORIDE\SODIUM BICARBONATE\SODIUM [Concomitant]
     Active Substance: POLYETHYLENE GLYCOL 3350\POTASSIUM CHLORIDE\SODIUM BICARBONATE\SODIUM CHLORIDE
     Indication: Product used for unknown indication
     Route: 065
  16. LANOLIN\LIGHT MINERAL OIL\PARAFFIN [Concomitant]
     Active Substance: LANOLIN\LIGHT MINERAL OIL\PARAFFIN
     Indication: Product used for unknown indication
     Route: 065

REACTIONS (1)
  - Clostridium difficile infection [Recovered/Resolved]
